FAERS Safety Report 5213262-8 (Version None)
Quarter: 2006Q4

REPORT INFORMATION
  Report Type: 
  Country: None (occurrence: None)
  Receive Date: 20061107
  Receipt Date: 20061004
  Transmission Date: 20070319
  Serious: No
  Sender: FDA-Public Use
  Company Number: 200614685BWH

PATIENT
  Age: 72 Year
  Sex: Male

DRUGS (7)
  1. LEVITRA [Suspect]
     Indication: ERECTILE DYSFUNCTION
     Dosage: SEE IMAGE
     Route: 048
     Dates: start: 20060701
  2. LEVITRA [Suspect]
     Indication: ERECTILE DYSFUNCTION
     Dosage: SEE IMAGE
     Route: 048
     Dates: start: 20060719
  3. VESICARE [Concomitant]
  4. LISINOPRIL [Concomitant]
  5. POTASSIUM ACETATE [Concomitant]
  6. MAGNESIUM [Concomitant]
  7. LOVASTATIN [Concomitant]

REACTIONS (2)
  - ERECTILE DYSFUNCTION [None]
  - PENILE VASCULAR DISORDER [None]
